FAERS Safety Report 6522522-X (Version None)
Quarter: 2009Q4

REPORT INFORMATION
  Report Type: 
  Country: None (occurrence: None)
  Receive Date: 20091224
  Receipt Date: 20091211
  Transmission Date: 20100525
  Serious: Yes (Other)
  Sender: FDA-Public Use
  Company Number: 452762

PATIENT
  Age: 49 Year
  Sex: Male
  Weight: 113.6 kg

DRUGS (2)
  1. FENTANYL CITRATE [Suspect]
     Indication: DRUG USE FOR UNKNOWN INDICATION
     Dosage: 250 MCG, UNKNOWN, INTRAVENOUS
     Route: 042
     Dates: start: 20091211, end: 20091211
  2. (DARVON) PROPHYLAXIS (PROPHYLAXIS) [Concomitant]

REACTIONS (2)
  - FLUSHING [None]
  - PRURITUS [None]
